FAERS Safety Report 21955616 (Version 1)
Quarter: 2023Q1

REPORT INFORMATION
  Report Type: Other
  Country: US (occurrence: US)
  Receive Date: 20230206
  Receipt Date: 20230206
  Transmission Date: 20230418
  Serious: Yes (Hospitalization)
  Sender: FDA-Public Use
  Company Number: US-ALVOGEN-2023089109

PATIENT
  Age: 68 Year
  Sex: Female

DRUGS (2)
  1. DOXORUBICIN [Suspect]
     Active Substance: DOXORUBICIN
     Indication: Invasive ductal breast carcinoma
     Dosage: RECEIVED 4 CYCLES (CUMULATIVE DOSE OF DOXORUBICIN 472 MG/M2)
  2. CYCLOPHOSPHAMIDE [Suspect]
     Active Substance: CYCLOPHOSPHAMIDE
     Indication: Invasive ductal breast carcinoma
     Dosage: RECEIVED 4 CYCLES (CUMULATIVE DOSE OF DOXORUBICIN 4720 MG/M2)

REACTIONS (2)
  - Device electrical impedance issue [Unknown]
  - Device pacing issue [Unknown]
